FAERS Safety Report 5955068-8 (Version None)
Quarter: 2008Q4

REPORT INFORMATION
  Report Type: 
  Country: None (occurrence: None)
  Receive Date: 20081117
  Receipt Date: 20081031
  Transmission Date: 20090506
  Serious: Yes (Other)
  Sender: FDA-Public Use
  Company Number: B0545410A

PATIENT
  Age: 31 Year
  Sex: Female

DRUGS (8)
  1. KIVEXA [Suspect]
     Indication: HIV INFECTION
     Route: 065
     Dates: start: 20051025, end: 20051111
  2. EPIVIR [Suspect]
     Indication: HIV INFECTION
     Route: 048
     Dates: start: 20051111
  3. TELZIR [Suspect]
     Indication: HIV INFECTION
     Route: 065
     Dates: start: 20071122
  4. VIRAMUNE [Suspect]
     Indication: HIV INFECTION
     Route: 048
     Dates: start: 20051025
  5. VIDEX [Suspect]
     Indication: HIV INFECTION
     Route: 048
     Dates: start: 20051111
  6. NORVIR [Suspect]
     Indication: HIV INFECTION
     Dates: start: 20070611
  7. VIREAD [Suspect]
     Indication: HIV INFECTION
     Dates: start: 20070725
  8. SUSTIVA [Concomitant]
     Indication: HIV INFECTION
     Route: 048

REACTIONS (3)
  - DRUG INTOLERANCE [None]
  - DRUG RASH WITH EOSINOPHILIA AND SYSTEMIC SYMPTOMS [None]
  - DRUG RESISTANCE [None]
